FAERS Safety Report 18790837 (Version 2)
Quarter: 2021Q1

REPORT INFORMATION
  Report Type: Spontaneous
  Country: IL (occurrence: IL)
  Receive Date: 20210126
  Receipt Date: 20210212
  Transmission Date: 20210419
  Serious: Yes (Hospitalization, Other)
  Sender: FDA-Public Use
  Company Number: IL-ALLERGAN-2103411US

PATIENT
  Sex: Female

DRUGS (16)
  1. STATOR [Concomitant]
  2. CONTROLOC [Concomitant]
     Active Substance: PANTOPRAZOLE SODIUM
  3. ALPHAGAN P [Concomitant]
     Active Substance: BRIMONIDINE TARTRATE
     Indication: GLAUCOMA
  4. TOBREX [Concomitant]
     Active Substance: TOBRAMYCIN
  5. POVIDONE?IODINE. [Concomitant]
     Active Substance: POVIDONE-IODINE
  6. CADEX [Concomitant]
  7. AMLODIPINE [Concomitant]
     Active Substance: AMLODIPINE BESYLATE
  8. CARDILOC [Concomitant]
     Active Substance: BISOPROLOL FUMARATE
  9. CARTIA [Concomitant]
  10. PILOCARPINE. [Concomitant]
     Active Substance: PILOCARPINE
     Indication: GLAUCOMA
  11. COSOPT [Concomitant]
     Active Substance: DORZOLAMIDE HYDROCHLORIDE\TIMOLOL MALEATE
     Indication: GLAUCOMA
  12. OZURDEX [Suspect]
     Active Substance: DEXAMETHASONE
     Indication: DIABETIC RETINAL OEDEMA
     Dosage: 0.7 MG, SINGLE
     Route: 031
     Dates: start: 20201224, end: 20201224
  13. FUSID [Concomitant]
  14. APIDRA [Concomitant]
     Active Substance: INSULIN GLULISINE
  15. NOVOMIX [Concomitant]
     Active Substance: INSULIN ASPART
  16. LOSARTAN. [Concomitant]
     Active Substance: LOSARTAN

REACTIONS (5)
  - Hypopyon [Unknown]
  - Vitreous opacities [Unknown]
  - Visual acuity reduced [Recovered/Resolved]
  - Eye pain [Unknown]
  - Endophthalmitis [Recovering/Resolving]

NARRATIVE: CASE EVENT DATE: 202012
